FAERS Safety Report 5012456-4 (Version None)
Quarter: 2006Q2

REPORT INFORMATION
  Report Type: 
  Country: None (occurrence: None)
  Receive Date: 20060410
  Receipt Date: 20050919
  Transmission Date: 20061013
  Serious: Yes (Hospitalization)
  Sender: FDA-Public Use
  Company Number: 05P-163-0311346

PATIENT
  Age: 43 Year
  Sex: Male
  Weight: 76.2043 kg

DRUGS (3)
  1. DEPAKOTE [Suspect]
     Indication: BIPOLAR DISORDER
     Dosage: 500 MG, 1 IN 1 D, PER ORAL
     Route: 048
     Dates: start: 20050605
  2. LORAZEPAM [Concomitant]
  3. RISPERIDONE [Concomitant]

REACTIONS (4)
  - NAUSEA [None]
  - RASH [None]
  - SKIN DISCOLOURATION [None]
  - TREMOR [None]
